FAERS Safety Report 9157740 (Version 1)
Quarter: 2013Q1

REPORT INFORMATION
  Report Type: Spontaneous
  Country: US (occurrence: None)
  Receive Date: 20130311
  Receipt Date: 20130311
  Transmission Date: 20140127
  Serious: No
  Sender: FDA-Public Use
  Company Number: None

PATIENT
  Age: 61 Year
  Sex: Female
  Weight: 97.4 kg

DRUGS (2)
  1. ALTEPLASE [Suspect]
     Indication: CEREBRAL INFARCTION
     Route: 040
     Dates: start: 20130201, end: 20130201
  2. ALTEPLASE [Suspect]
     Indication: CEREBRAL INFARCTION
     Route: 042
     Dates: start: 20130201, end: 20130202

REACTIONS (9)
  - Agitation [None]
  - Hyperhidrosis [None]
  - Generalised erythema [None]
  - Infusion related reaction [None]
  - Blister [None]
  - Urticaria [None]
  - Face oedema [None]
  - Lip oedema [None]
  - Tongue oedema [None]
